FAERS Safety Report 9431475 (Version 1)
Quarter: 2013Q3

REPORT INFORMATION
  Report Type: Spontaneous
  Country: US (occurrence: US)
  Receive Date: 20130730
  Receipt Date: 20130730
  Transmission Date: 20140515
  Serious: No
  Sender: FDA-Public Use
  Company Number: US-TEVA-418820USA

PATIENT
  Sex: Female
  Weight: 77.18 kg

DRUGS (1)
  1. PARAGARD 380A [Suspect]
     Indication: CONTRACEPTION
     Dates: start: 2010

REACTIONS (2)
  - Local swelling [Unknown]
  - Back pain [Not Recovered/Not Resolved]
